FAERS Safety Report 4574173-4 (Version None)
Quarter: 2005Q1

REPORT INFORMATION
  Report Type: 
  Country: None (occurrence: None)
  Receive Date: 20050208
  Receipt Date: 20041109
  Transmission Date: 20050727
  Serious: No
  Sender: FDA-Public Use
  Company Number: US-GLAXOSMITHKLINE-A0533261A

PATIENT
  Age: 45 Year
  Sex: Female

DRUGS (8)
  1. PAROXETINE HCL [Suspect]
     Indication: DEPRESSION
     Route: 048
  2. PAXIL [Suspect]
     Indication: DEPRESSION
     Dosage: 20MG PER DAY
     Route: 048
  3. PAXIL [Suspect]
     Dosage: 12.5MG PER DAY
     Route: 048
  4. WELLBUTRIN [Suspect]
     Indication: DEPRESSION
     Dosage: 300MG PER DAY
     Route: 048
  5. WELLBUTRIN [Suspect]
     Dosage: 300MG IN THE MORNING
     Route: 048
  6. TRAZODONE [Concomitant]
  7. MULTI-VITAMIN [Concomitant]
  8. FIBERCON [Concomitant]

REACTIONS (3)
  - DRUG INEFFECTIVE [None]
  - HYPERHIDROSIS [None]
  - INSOMNIA [None]
